FAERS Safety Report 15239861 (Version 2)
Quarter: 2019Q4

REPORT INFORMATION
  Report Type: Spontaneous
  Country: GB (occurrence: GB)
  Receive Date: 20180803
  Receipt Date: 20191202
  Transmission Date: 20200122
  Serious: Yes (Other)
  Sender: FDA-Public Use
  Company Number: GB-TEVA-2009A-00297

PATIENT
  Age: 33 Year
  Sex: Female
  Weight: 81 kg

DRUGS (12)
  1. METOCLOPRAMIDE. [Suspect]
     Active Substance: METOCLOPRAMIDE
     Route: 042
  2. ALFENTANIL. [Suspect]
     Active Substance: ALFENTANIL
     Route: 065
  3. SODIUM CITRATE. [Suspect]
     Active Substance: SODIUM CITRATE
     Route: 065
  4. AZATHIOPRINE (UNKNOWN) [Suspect]
     Active Substance: AZATHIOPRINE
     Route: 065
  5. RANITIDINE. [Suspect]
     Active Substance: RANITIDINE
     Route: 042
  6. DALTEPARIN [Suspect]
     Active Substance: DALTEPARIN
     Route: 065
  7. PROTAMINE [Suspect]
     Active Substance: PROTAMINE
     Route: 065
  8. SUXAMETHONIUM [Suspect]
     Active Substance: SUCCINYLCHOLINE
     Route: 065
  9. IMMUNOGLOBULIN [IMMUNOGLOBULINS NOS] [Suspect]
     Active Substance: IMMUNE GLOBULIN NOS
     Route: 042
  10. ISOFLURANE. [Suspect]
     Active Substance: ISOFLURANE
     Route: 065
  11. ASPIRIN. [Suspect]
     Active Substance: ASPIRIN
     Route: 065
  12. THIOPENTAL [Suspect]
     Active Substance: THIOPENTAL
     Route: 065

REACTIONS (12)
  - Hemiplegia [Unknown]
  - Hypocoagulable state [Unknown]
  - Premature labour [Unknown]
  - Fall [Unknown]
  - Immune thrombocytopenic purpura [Unknown]
  - Maternal exposure during pregnancy [Unknown]
  - Premature rupture of membranes [Unknown]
  - Foetal malpresentation [Unknown]
  - Hypotonia [Unknown]
  - Activated partial thromboplastin time prolonged [Unknown]
  - Aphasia [Unknown]
  - Ischaemic stroke [Unknown]
